FAERS Safety Report 11783687 (Version 1)
Quarter: 2015Q4

REPORT INFORMATION
  Report Type: Spontaneous
  Country: US (occurrence: US)
  Receive Date: 20151127
  Receipt Date: 20151127
  Transmission Date: 20160305
  Serious: Yes (Hospitalization, Other)
  Sender: FDA-Public Use
  Company Number: US-BAYER-2015-469913

PATIENT
  Age: 54 Year
  Sex: Male

DRUGS (1)
  1. ACETYLSALICYLIC ACID({=100 MG) [Suspect]
     Active Substance: ASPIRIN
     Dosage: 81 MG, QD
     Route: 048

REACTIONS (6)
  - Traumatic intracranial haemorrhage [None]
  - Cerebral haematoma [None]
  - Device dislocation [Recovered/Resolved]
  - Ballismus [Recovered/Resolved]
  - Fall [None]
  - Head injury [None]
